FAERS Safety Report 14305261 (Version 1)
Quarter: 2017Q4

REPORT INFORMATION
  Report Type: Spontaneous
  Country: US (occurrence: US)
  Receive Date: 20171219
  Receipt Date: 20171219
  Transmission Date: 20180321
  Serious: Yes (Death, Other)
  Sender: FDA-Public Use
  Company Number: US-OTSUKA-KJ20050833

PATIENT
  Age: 60 Year
  Sex: Male

DRUGS (1)
  1. ABILIFY [Suspect]
     Active Substance: ARIPIPRAZOLE
     Indication: SCHIZOPHRENIA
     Dosage: UNK
     Route: 048
     Dates: start: 20050201, end: 20050215

REACTIONS (10)
  - Subclavian artery thrombosis [Unknown]
  - Renal tubular necrosis [Unknown]
  - Pulmonary oedema [Unknown]
  - Diabetic hyperosmolar coma [Fatal]
  - Pancreatitis acute [Unknown]
  - Vomiting [Unknown]
  - Nausea [Unknown]
  - Seizure [Unknown]
  - Brain oedema [Unknown]
  - Cerebral infarction [Unknown]

NARRATIVE: CASE EVENT DATE: 200502
